FAERS Safety Report 24663798 (Version 2)
Quarter: 2024Q4

REPORT INFORMATION
  Report Type: Spontaneous
  Country: DE (occurrence: DE)
  Receive Date: 20241126
  Receipt Date: 20241223
  Transmission Date: 20250114
  Serious: Yes (Other)
  Sender: NOVARTIS
  Company Number: DE-002147023-NVSC2024DE224867

PATIENT
  Sex: Female

DRUGS (1)
  1. KESIMPTA [Suspect]
     Active Substance: OFATUMUMAB
     Indication: Multiple sclerosis
     Dosage: UNK, QMO
     Route: 065
     Dates: start: 20230917

REACTIONS (12)
  - Angioedema [Recovering/Resolving]
  - Lip swelling [Recovering/Resolving]
  - Eye swelling [Recovering/Resolving]
  - Weight increased [Unknown]
  - Impaired healing [Unknown]
  - Stomatitis [Not Recovered/Not Resolved]
  - Abdominal discomfort [Recovering/Resolving]
  - Urinary tract infection [Recovering/Resolving]
  - Flank pain [Recovering/Resolving]
  - White blood cell count increased [Unknown]
  - Chills [Recovered/Resolved]
  - Skin irritation [Unknown]

NARRATIVE: CASE EVENT DATE: 20241111
